FAERS Safety Report 4414304-X (Version None)
Quarter: 2004Q3

REPORT INFORMATION
  Report Type: 
  Country: None (occurrence: None)
  Receive Date: 20040729
  Receipt Date: 20031114
  Transmission Date: 20050211
  Serious: Yes (Hospitalization)
  Sender: FDA-Public Use
  Company Number: MEDI-0001137

PATIENT
  Age: 6 Month
  Sex: Male
  Weight: 6.804 kg

DRUGS (7)
  1. SYNAGIS [Suspect]
     Indication: ANTIVIRAL PROPHYLAXIS
     Dosage: SEE IMAGE
     Route: 030
     Dates: start: 20031007, end: 20031007
  2. SYNAGIS [Suspect]
     Indication: ANTIVIRAL PROPHYLAXIS
     Dosage: SEE IMAGE
     Route: 030
     Dates: start: 20031104
  3. SYNAGIS [Suspect]
  4. SYNAGIS [Suspect]
  5. ORAPRED [Concomitant]
  6. ALBUTEROL [Concomitant]
  7. ATROVENT [Concomitant]

REACTIONS (3)
  - ASTHMA [None]
  - BRONCHIOLITIS [None]
  - HYPOXIA [None]
